FAERS Safety Report 6306168-4 (Version None)
Quarter: 2009Q3

REPORT INFORMATION
  Report Type: 
  Country: None (occurrence: None)
  Receive Date: 20090812
  Receipt Date: 20090803
  Transmission Date: 20100115
  Serious: Yes (Other)
  Sender: FDA-Public Use
  Company Number: US-ROCHE-644479

PATIENT
  Sex: Female
  Weight: 55.8 kg

DRUGS (6)
  1. BONIVA [Suspect]
     Indication: OSTEOPOROSIS
     Route: 048
     Dates: start: 20090207, end: 20090207
  2. PROZAC [Concomitant]
     Indication: DEPRESSION
     Route: 048
     Dates: start: 20031219
  3. HYDROCHLOROTHIAZIDE [Concomitant]
     Indication: HYPERTENSION
     Route: 048
     Dates: start: 20070223
  4. SYNTHROID [Concomitant]
     Indication: HYPOTHYROIDISM
     Route: 048
     Dates: start: 20070223
  5. SOMA [Concomitant]
     Indication: PAIN
     Dosage: DOSE: QDPW
     Route: 048
     Dates: start: 20060719
  6. AMBIEN [Concomitant]
     Indication: INSOMNIA
     Route: 048
     Dates: start: 20031219

REACTIONS (4)
  - CHEST DISCOMFORT [None]
  - DYSPNOEA [None]
  - HYPERSENSITIVITY [None]
  - HYPOAESTHESIA [None]
